FAERS Safety Report 4788747-9 (Version None)
Quarter: 2005Q4

REPORT INFORMATION
  Report Type: 
  Country: None (occurrence: None)
  Receive Date: 20051003
  Receipt Date: 20041026
  Transmission Date: 20060501
  Serious: Yes (Other)
  Sender: FDA-Public Use
  Company Number: US-JNJFOC-20040808592

PATIENT
  Age: 30 Year
  Sex: Male
  Weight: 117.9352 kg

DRUGS (4)
  1. CONCERTA [Suspect]
     Indication: ATTENTION DEFICIT/HYPERACTIVITY DISORDER
     Dosage: 36 MG, 1 IN 1 DAY, ORAL
     Route: 048
     Dates: start: 20031001, end: 20040101
  2. PAXIL [Suspect]
     Indication: SOCIAL PHOBIA
     Dosage: 50 MG, 1 IN 1 DAY, ORAL; 62.5 MG,  1 IN 1 DAY, ORAL
     Route: 048
     Dates: start: 20030101, end: 20040201
  3. PAXIL [Suspect]
     Indication: SOCIAL PHOBIA
     Dosage: 50 MG, 1 IN 1 DAY, ORAL; 62.5 MG,  1 IN 1 DAY, ORAL
     Route: 048
     Dates: start: 20030101
  4. STRATTERA (ALL OTHER THERAPEUTIC PRODUCTS) [Concomitant]

REACTIONS (1)
  - CONVULSION [None]
